FAERS Safety Report 17720407 (Version 2)
Quarter: 2021Q2

REPORT INFORMATION
  Report Type: Spontaneous
  Country: US (occurrence: US)
  Receive Date: 20200428
  Receipt Date: 20210501
  Transmission Date: 20210716
  Serious: No
  Sender: FDA-Public Use
  Company Number: US-ROCHE-2356304

PATIENT
  Age: 63 Year
  Sex: Female
  Weight: 72.64 kg

DRUGS (1)
  1. AVASTIN [Suspect]
     Active Substance: BEVACIZUMAB
     Indication: PRODUCT USED FOR UNKNOWN INDICATION
     Route: 065
     Dates: start: 201801

REACTIONS (7)
  - Influenza like illness [Recovered/Resolved]
  - Abdominal pain upper [Unknown]
  - Weight increased [Unknown]
  - Headache [Unknown]
  - Back pain [Unknown]
  - Nasal dryness [Unknown]
  - Hypertension [Unknown]

NARRATIVE: CASE EVENT DATE: 201809
